FAERS Safety Report 15968471 (Version 1)
Quarter: 2019Q1

REPORT INFORMATION
  Report Type: Spontaneous
  Country: CN (occurrence: CN)
  Receive Date: 20190215
  Receipt Date: 20190215
  Transmission Date: 20190418
  Serious: Yes (Other)
  Sender: FDA-Public Use
  Company Number: CN-GLAXOSMITHKLINE-CN2019GSK025214

PATIENT
  Age: 57 Year
  Sex: Female
  Weight: 65 kg

DRUGS (8)
  1. SERETIDE [Suspect]
     Active Substance: FLUTICASONE PROPIONATE\SALMETEROL XINAFOATE
     Dosage: 1 PUFF(S), QD (50/250 UG)
     Route: 055
  2. SERETIDE [Suspect]
     Active Substance: FLUTICASONE PROPIONATE\SALMETEROL XINAFOATE
     Indication: ASTHMA
     Dosage: UNK, (50/250 UG)
     Route: 055
  3. SERETIDE [Suspect]
     Active Substance: FLUTICASONE PROPIONATE\SALMETEROL XINAFOATE
     Dosage: 1 PUFF(S), QD
     Route: 055
  4. SERETIDE [Suspect]
     Active Substance: FLUTICASONE PROPIONATE\SALMETEROL XINAFOATE
     Dosage: 2 PUFF(S), UNK (50/250 UG )
     Route: 055
     Dates: start: 20190210
  5. VENTOLIN [Suspect]
     Active Substance: ALBUTEROL SULFATE
     Dosage: UNK, BID (2 SPRAYS)
  6. VENTOLIN [Suspect]
     Active Substance: ALBUTEROL SULFATE
     Dosage: UNK (1 SPRAY)
  7. VENTOLIN [Suspect]
     Active Substance: ALBUTEROL SULFATE
     Indication: ASTHMA
     Dosage: UNK UNK, QD (2 SPRAYS)
     Route: 055
  8. VENTOLIN [Suspect]
     Active Substance: ALBUTEROL SULFATE
     Dosage: UNK
     Dates: start: 20190210, end: 20190210

REACTIONS (14)
  - Disease recurrence [Unknown]
  - Respiratory tract infection [Unknown]
  - Overdose [Unknown]
  - Extrasystoles [Unknown]
  - Drug ineffective [Unknown]
  - Swelling face [Unknown]
  - Computerised tomogram thorax abnormal [Not Recovered/Not Resolved]
  - Asphyxia [Unknown]
  - Nasopharyngitis [Unknown]
  - Gastric dilatation [Not Recovered/Not Resolved]
  - Cardiac discomfort [Unknown]
  - Dyspnoea [Unknown]
  - Toothache [Not Recovered/Not Resolved]
  - Inappropriate schedule of product administration [Unknown]
